FAERS Safety Report 9432723 (Version 2)
Quarter: 2013Q3

REPORT INFORMATION
  Report Type: Spontaneous
  Country: JP (occurrence: JP)
  Receive Date: 20130731
  Receipt Date: 20130812
  Transmission Date: 20140515
  Serious: Yes (Other)
  Sender: FDA-Public Use
  Company Number: JP-MERCK-1307JPN015006

PATIENT
  Age: 62 Year
  Sex: Female

DRUGS (2)
  1. GLACTIV [Suspect]
     Indication: TYPE 2 DIABETES MELLITUS
     Dosage: 50 MG, ONCE A DAY
     Route: 048
  2. ETHYL-4-CARBOXY ALPHA-PHENYL-1,2-THIAZOLIDINE ACETATE [Suspect]

REACTIONS (1)
  - Hypoglycaemia [Recovered/Resolved]
